FAERS Safety Report 6146006-6 (Version None)
Quarter: 2009Q2

REPORT INFORMATION
  Report Type: 
  Country: None (occurrence: None)
  Receive Date: 20090407
  Receipt Date: 20090331
  Transmission Date: 20091009
  Serious: Yes (Other)
  Sender: FDA-Public Use
  Company Number: JP-ASTRAZENECA-2007AP07961

PATIENT
  Age: 66 Year
  Sex: Male

DRUGS (11)
  1. CARBOCAIN [Suspect]
     Indication: EPIDURAL ANAESTHESIA
     Dosage: 2 ML X1, 4 ML X5
     Route: 008
     Dates: start: 20070312, end: 20070312
  2. ANAPEINE [Suspect]
     Indication: EPIDURAL ANAESTHESIA
     Dosage: 0.2% 188 ML (4 ML/HR). PATIENT CONTROLLED AMOUNT: 3 ML.
     Route: 008
     Dates: start: 20070312, end: 20070314
  3. EPHEDRIN [Concomitant]
     Indication: BLOOD PRESSURE DECREASED
     Route: 042
     Dates: start: 20070312, end: 20070312
  4. SEVOFLURANE [Concomitant]
     Indication: MAINTENANCE OF ANAESTHESIA
     Dosage: 0.8-1.5 %
     Route: 055
     Dates: start: 20070312, end: 20070312
  5. NITROUS OXIDE [Concomitant]
     Indication: MAINTENANCE OF ANAESTHESIA
     Dosage: 3-4 L/MIN
     Route: 055
     Dates: start: 20070312, end: 20070312
  6. VECURONIUM BROMIDE [Concomitant]
     Indication: MAINTENANCE OF ANAESTHESIA
     Dosage: 7 MG X1, 1 MG X4
     Route: 042
     Dates: start: 20070312, end: 20070312
  7. FENTANYL-25 [Concomitant]
     Indication: MAINTENANCE OF ANAESTHESIA
     Route: 042
     Dates: start: 20070312, end: 20070312
  8. DIPRIVAN [Concomitant]
     Indication: MAINTENANCE OF ANAESTHESIA
     Route: 042
     Dates: start: 20070312, end: 20070312
  9. ATROPINE [Concomitant]
     Indication: CHOLINERGIC SYNDROME
     Route: 042
     Dates: start: 20070312, end: 20070312
  10. NEOSTIGMINE_INORGANIC SALTS COMBINED DRUG [Concomitant]
     Indication: ANAESTHESIA REVERSAL
     Route: 042
     Dates: start: 20070312, end: 20070312
  11. FLUMAZENIL [Concomitant]
     Indication: ANAESTHESIA REVERSAL
     Route: 042
     Dates: start: 20070312, end: 20070312

REACTIONS (2)
  - MOVEMENT DISORDER [None]
  - SENSORY DISTURBANCE [None]
